FAERS Safety Report 5392682-5 (Version None)
Quarter: 2007Q3

REPORT INFORMATION
  Report Type: 
  Country: None (occurrence: None)
  Receive Date: 20070720
  Receipt Date: 20070711
  Transmission Date: 20080115
  Serious: Yes (Congenital Anomaly)
  Sender: FDA-Public Use
  Company Number: GB-ABBOTT-07P-167-0374244-00

PATIENT
  Sex: Male

DRUGS (1)
  1. EPILIM [Suspect]
     Indication: DRUG EXPOSURE DURING PREGNANCY

REACTIONS (12)
  - ABNORMAL BEHAVIOUR [None]
  - COGNITIVE DISORDER [None]
  - COMMUNICATION DISORDER [None]
  - COORDINATION ABNORMAL [None]
  - DEVELOPMENTAL DELAY [None]
  - DEXTROCARDIA [None]
  - DYSMORPHISM [None]
  - FOETAL ANTICONVULSANT SYNDROME [None]
  - NEURODEVELOPMENTAL DISORDER [None]
  - PSYCHOMOTOR SKILLS IMPAIRED [None]
  - SALIVARY HYPERSECRETION [None]
  - SPEECH DISORDER DEVELOPMENTAL [None]
